FAERS Safety Report 4544967-X (Version None)
Quarter: 2004Q4

REPORT INFORMATION
  Report Type: 
  Country: None (occurrence: None)
  Receive Date: 20041230
  Receipt Date: 20041220
  Transmission Date: 20050328
  Serious: Yes (Other)
  Sender: FDA-Public Use
  Company Number: S04-USA-07926-01

PATIENT
  Age: 19 Year
  Sex: Female
  Weight: 61.6892 kg

DRUGS (2)
  1. LEXAPRO [Suspect]
     Indication: BULIMIA NERVOSA
     Dates: start: 20041012
  2. ALCOHOL [Suspect]
     Dates: start: 20041026, end: 20041026

REACTIONS (9)
  - ABNORMAL BEHAVIOUR [None]
  - AMNESIA [None]
  - BLOOD ALCOHOL INCREASED [None]
  - CONCUSSION [None]
  - DELIRIUM [None]
  - DIFFICULTY IN WALKING [None]
  - FALL [None]
  - LOSS OF CONSCIOUSNESS [None]
  - SEDATION [None]
